FAERS Safety Report 8371892-9 (Version None)
Quarter: 2012Q2

REPORT INFORMATION
  Report Type: 
  Country: None (occurrence: None)
  Receive Date: 20120518
  Receipt Date: 20120510
  Transmission Date: 20120825
  Serious: Yes (Hospitalization)
  Sender: FDA-Public Use
  Company Number: DE-ROCHE-1068224

PATIENT
  Sex: Male
  Weight: 80 kg

DRUGS (2)
  1. PEGASYS [Suspect]
     Indication: HEPATITIS C
     Route: 058
     Dates: start: 20110520
  2. COPEGUS [Suspect]
     Indication: HEPATITIS C
     Route: 048
     Dates: start: 20110520

REACTIONS (6)
  - HEAD INJURY [None]
  - VOMITING [None]
  - ANGINA PECTORIS [None]
  - NAUSEA [None]
  - CONCUSSION [None]
  - ALTERED STATE OF CONSCIOUSNESS [None]
